FAERS Safety Report 18943464 (Version 1)
Quarter: 2021Q1

REPORT INFORMATION
  Report Type: Spontaneous
  Country: DE (occurrence: DE)
  Receive Date: 20210226
  Receipt Date: 20210226
  Transmission Date: 20210420
  Serious: Yes (Hospitalization, Other)
  Sender: FDA-Public Use
  Company Number: DE-TEVA-2021-DE-1882914

PATIENT
  Sex: Female

DRUGS (3)
  1. COTRIM [Suspect]
     Active Substance: SULFAMETHOXAZOLE\TRIMETHOPRIM
     Dosage: 2 DOSAGE FORMS
  2. SYMKEVI 100 MG/150 MG FILMTABLETTEN [Interacting]
     Active Substance: IVACAFTOR\TEZACAFTOR
     Indication: CYSTIC FIBROSIS
     Dosage: UNIT DOSE :1 DOSAGE FORMS ,FOR ACTIVE INGREDIENT TEZACAFTOR THE STRENGTH IS 100 MILLIGRAM .?FOR ACTI
  3. KALYDECO [Interacting]
     Active Substance: IVACAFTOR
     Indication: CYSTIC FIBROSIS
     Dosage: UNIT DOSE:150 MG

REACTIONS (6)
  - Chills [Unknown]
  - Tremor [Unknown]
  - Pyrexia [Recovered/Resolved]
  - Drug interaction [Unknown]
  - Dyspnoea [Unknown]
  - Heart rate increased [Unknown]

NARRATIVE: CASE EVENT DATE: 201909
